FAERS Safety Report 25130478 (Version 1)
Quarter: 2025Q1

REPORT INFORMATION
  Report Type: Spontaneous
  Country: US (occurrence: None)
  Receive Date: 20250327
  Receipt Date: 20250327
  Transmission Date: 20250409
  Serious: No
  Sender: INCYTE
  Company Number: US-INCYTE CORPORATION-2025IN002955

PATIENT
  Age: 69 Year

DRUGS (1)
  1. JAKAFI [Suspect]
     Active Substance: RUXOLITINIB
     Indication: Multisystem inflammatory syndrome
     Route: 065

REACTIONS (5)
  - Somnolence [Unknown]
  - Dyspnoea [Unknown]
  - Brain fog [Unknown]
  - Anaemia [Unknown]
  - Off label use [Unknown]
